FAERS Safety Report 5398976-1 (Version None)
Quarter: 2007Q3

REPORT INFORMATION
  Report Type: 
  Country: None (occurrence: None)
  Receive Date: 20070724
  Receipt Date: 20070724
  Transmission Date: 20080115
  Serious: No
  Sender: FDA-Public Use
  Company Number: None

PATIENT
  Sex: Female
  Weight: 50.6 kg

DRUGS (20)
  1. CYCLOPHOSPHAMIDE [Suspect]
     Dosage: 936 MG
  2. LIPOSOMAL DOXORUBICIN (DOXIL) [Suspect]
     Dosage: 55 MG
  3. NEULASTA [Suspect]
     Dosage: 6 MG
  4. PREDNISONE [Suspect]
     Dosage: 300 MG
  5. RITUXIMAB (MOAB C2B8 ANTI CD20, CHIMERIC) [Suspect]
     Dosage: 585 MG
  6. VINCRISTINE SULFATE [Suspect]
     Dosage: 2 MG
  7. DARVON [Concomitant]
  8. DYAZIDE [Concomitant]
  9. GLUCOTROL [Concomitant]
  10. CALCIUM CHLORIDE [Concomitant]
  11. CENTRUM [Concomitant]
  12. COREG [Concomitant]
  13. DARVON [Concomitant]
  14. MAGNESIUM OXIDE [Concomitant]
  15. PHENERGAN HCL [Concomitant]
  16. PROTONIX [Concomitant]
  17. REGULAR INSULIN [Concomitant]
  18. SYNTHROID [Concomitant]
  19. VALTREX [Concomitant]
  20. ZETIA [Concomitant]

REACTIONS (3)
  - ECHOCARDIOGRAM ABNORMAL [None]
  - GAIT DISTURBANCE [None]
  - NEUROPATHY [None]
